FAERS Safety Report 5106724-5 (Version None)
Quarter: 2006Q3

REPORT INFORMATION
  Report Type: 
  Country: None (occurrence: None)
  Receive Date: 20060913
  Receipt Date: 20060828
  Transmission Date: 20061208
  Serious: Yes (Hospitalization)
  Sender: FDA-Public Use
  Company Number: MEDI-0004615

PATIENT
  Age: 8 Month
  Sex: Male
  Weight: 8.05 kg

DRUGS (8)
  1. SYNAGIS [Suspect]
     Indication: ANTIVIRAL PROPHYLAXIS
     Dosage: 1 IN 30 D; INTRAMUSCULAR, SEE IMAGE
     Route: 030
     Dates: start: 20051020, end: 20060111
  2. SYNAGIS [Suspect]
     Indication: ANTIVIRAL PROPHYLAXIS
     Dosage: 1 IN 30 D; INTRAMUSCULAR, SEE IMAGE
     Route: 030
     Dates: start: 20060302, end: 20060302
  3. SYNAGIS [Suspect]
     Indication: ANTIVIRAL PROPHYLAXIS
     Dosage: 1 IN 30 D; INTRAMUSCULAR, SEE IMAGE
     Route: 030
     Dates: start: 20051019
  4. SYNAGIS [Suspect]
     Indication: ANTIVIRAL PROPHYLAXIS
     Dosage: 1 IN 30 D; INTRAMUSCULAR, SEE IMAGE
     Route: 030
     Dates: start: 20051116
  5. SYNAGIS [Suspect]
     Indication: ANTIVIRAL PROPHYLAXIS
     Dosage: 1 IN 30 D; INTRAMUSCULAR, SEE IMAGE
     Route: 030
     Dates: start: 20051214
  6. SYNAGIS [Suspect]
     Indication: ANTIVIRAL PROPHYLAXIS
     Dosage: 1 IN 30 D; INTRAMUSCULAR, SEE IMAGE
     Route: 030
     Dates: start: 20060208
  7. ALBUTEROL SPIROS [Concomitant]
  8. BETAMETHASONE [Concomitant]

REACTIONS (2)
  - ASTHMA [None]
  - BRONCHIOLITIS [None]
